FAERS Safety Report 4845129-9 (Version None)
Quarter: 2005Q4

REPORT INFORMATION
  Report Type: 
  Country: None (occurrence: None)
  Receive Date: 20051125
  Receipt Date: 20051114
  Transmission Date: 20060501
  Serious: Yes (Other)
  Sender: FDA-Public Use
  Company Number: 2005141741

PATIENT
  Sex: Female
  Weight: 77.1115 kg

DRUGS (11)
  1. CELEBREX [Suspect]
     Indication: ARTHRITIS
     Dosage: UNK (1 IN 1 D), ORAL
     Route: 048
  2. BEXTRA [Suspect]
     Indication: ARTHRITIS
     Dosage: ORAL
     Route: 048
  3. NEURONTIN [Suspect]
     Indication: NERVE INJURY
     Dosage: ORAL
     Route: 048
  4. TOPAMAX (TOPIRAMAE) [Suspect]
     Indication: NEURALGIA
     Dosage: ORAL
     Route: 048
  5. CYMBALTA [Suspect]
     Indication: NEURALGIA
     Dosage: 30 MG (30 MG, 1 IN 1 D), ORAL
     Route: 048
  6. GABITRIL [Suspect]
     Indication: NEURALGIA
     Dosage: 10 MG (10 MG, 1 IN 1 D), ORAL
     Route: 048
  7. TOPROL (METOPROLOL) [Concomitant]
  8. MAXZIDE [Concomitant]
  9. ASPIRIN [Concomitant]
  10. ZYRTEC [Concomitant]
  11. ALL OTHER THERAPEUTIC PRODUCTS (ALL OTHER THERAPEUTIC PRODUCTS) [Concomitant]

REACTIONS (15)
  - BLOOD CREATININE INCREASED [None]
  - CHILLS [None]
  - DIFFICULTY IN WALKING [None]
  - DRUG INEFFECTIVE [None]
  - FALL [None]
  - FEELING ABNORMAL [None]
  - MEMORY IMPAIRMENT [None]
  - NAUSEA [None]
  - NERVE INJURY [None]
  - NEURALGIA [None]
  - PAIN IN EXTREMITY [None]
  - PANIC ATTACK [None]
  - RENAL DISORDER [None]
  - SWELLING [None]
  - VOMITING [None]
